FAERS Safety Report 10083660 (Version 1)
Quarter: 2014Q2

REPORT INFORMATION
  Report Type: Spontaneous
  Country: US (occurrence: None)
  Receive Date: 20140416
  Receipt Date: 20140416
  Transmission Date: 20141212
  Serious: No
  Sender: FDA-Public Use
  Company Number: None

PATIENT
  Age: 80 Year
  Sex: Female
  Weight: 83.46 kg

DRUGS (7)
  1. AMLODIPIN BESYLATE [Suspect]
     Indication: HYPERTENSION
     Dosage: 5 MG TABLETS, 1 PILL PER DAY, BY MOUTH W/ A GLASS OF WATER
     Route: 048
  2. HYDROCHLOROT [Suspect]
     Indication: HYPERTENSION
     Dosage: 25 MG, 30 PILLS, ONE TABLET BY MOUTH EVERY DAY, BY MOUTH
     Route: 048
     Dates: start: 20140312, end: 20140312
  3. LISINOPRIL 5 MG [Concomitant]
  4. SIMVASTATIN 10 MG [Concomitant]
  5. BAYER ASPIRIN [Concomitant]
  6. VIT E-A-D3 [Concomitant]
  7. CQT [Concomitant]

REACTIONS (3)
  - Wrong technique in drug usage process [None]
  - Headache [None]
  - Dizziness [None]
